FAERS Safety Report 16219054 (Version 1)
Quarter: 2019Q2

REPORT INFORMATION
  Report Type: Spontaneous
  Country: US (occurrence: US)
  Receive Date: 20190419
  Receipt Date: 20190419
  Transmission Date: 20190711
  Serious: No
  Sender: FDA-Public Use
  Company Number: PHEH2019US015864

PATIENT
  Sex: Male

DRUGS (1)
  1. VOTRIENT [Suspect]
     Active Substance: PAZOPANIB HYDROCHLORIDE
     Indication: RENAL CANCER
     Dosage: 600 MG, QD
     Route: 048

REACTIONS (9)
  - Memory impairment [Unknown]
  - Asthenia [Recovered/Resolved]
  - Constipation [Recovered/Resolved]
  - Hair colour changes [Recovered/Resolved]
  - Pharyngitis [Recovered/Resolved]
  - Decreased appetite [Recovered/Resolved]
  - Haemoptysis [Recovered/Resolved]
  - Headache [Recovered/Resolved]
  - Epistaxis [Recovered/Resolved]
